FAERS Safety Report 24897553 (Version 3)
Quarter: 2025Q1

REPORT INFORMATION
  Report Type: Spontaneous
  Country: US (occurrence: US)
  Receive Date: 20250129
  Receipt Date: 20250305
  Transmission Date: 20250409
  Serious: Yes (Other)
  Sender: UCB
  Company Number: US-UCBSA-2025004196

PATIENT
  Sex: Female

DRUGS (4)
  1. NAYZILAM [Suspect]
     Active Substance: MIDAZOLAM
     Indication: Seizure
     Route: 045
     Dates: start: 202411
  2. NAYZILAM [Suspect]
     Active Substance: MIDAZOLAM
     Route: 045
  3. BRIVIACT [Suspect]
     Active Substance: BRIVARACETAM
     Indication: Seizure
     Dates: start: 202401
  4. VITAMINS NOS [Concomitant]
     Active Substance: VITAMINS
     Indication: Product used for unknown indication

REACTIONS (8)
  - Seizure [Not Recovered/Not Resolved]
  - Cough [Not Recovered/Not Resolved]
  - Head titubation [Not Recovered/Not Resolved]
  - Burning sensation [Not Recovered/Not Resolved]
  - Device issue [Unknown]
  - Drug ineffective [Unknown]
  - Overdose [Unknown]
  - Product use issue [Unknown]

NARRATIVE: CASE EVENT DATE: 20240101
